FAERS Safety Report 4530093-2 (Version None)
Quarter: 2004Q4

REPORT INFORMATION
  Report Type: 
  Country: None (occurrence: None)
  Receive Date: 20041215
  Receipt Date: 20041202
  Transmission Date: 20050328
  Serious: Yes (Other)
  Sender: FDA-Public Use
  Company Number: 041208-0000500

PATIENT
  Age: 31 Year
  Sex: Male

DRUGS (1)
  1. METHAMPHETAMINE HCL [Suspect]
     Indication: DRUG THERAPY
     Dosage: NAS

REACTIONS (6)
  - DISORIENTATION [None]
  - DRUG ABUSER [None]
  - DRUG TOXICITY [None]
  - FALL [None]
  - HYPOTONIA [None]
  - STUPOR [None]
